FAERS Safety Report 8924365 (Version 2)
Quarter: 2012Q4

REPORT INFORMATION
  Report Type: Report from Study
  Country: FR (occurrence: FR)
  Receive Date: 20121126
  Receipt Date: 20121128
  Transmission Date: 20130627
  Serious: Yes (Other)
  Sender: FDA-Public Use
  Company Number: FR-ROCHE-1156624

PATIENT
  Age: 19 Year
  Sex: Male
  Weight: 89 kg

DRUGS (6)
  1. RITUXIMAB [Suspect]
     Indication: ACUTE LEUKAEMIA
     Route: 065
     Dates: start: 20100805
  2. RITUXIMAB [Suspect]
     Route: 065
     Dates: start: 20100906
  3. ENDOXAN [Suspect]
     Indication: ACUTE LEUKAEMIA
     Dosage: dose: 1000 ng/J
     Route: 042
     Dates: start: 20100818, end: 20100819
  4. ETOPOSIDE [Suspect]
     Indication: ACUTE LEUKAEMIA
     Dosage: dose: 150 ng/J
     Route: 042
     Dates: start: 20100818, end: 20100818
  5. ASPARAGINASE [Suspect]
     Indication: PRODUCT USED FOR UNKNOWN INDICATION
     Route: 065
  6. ZELITREX [Concomitant]
     Route: 048
     Dates: start: 20100708

REACTIONS (1)
  - Hepatocellular injury [Recovered/Resolved with Sequelae]
